FAERS Safety Report 19600427 (Version 3)
Quarter: 2021Q3

REPORT INFORMATION
  Report Type: Report from Study
  Country: US (occurrence: US)
  Receive Date: 20210723
  Receipt Date: 20210923
  Transmission Date: 20211014
  Serious: Yes (Hospitalization)
  Sender: FDA-Public Use
  Company Number: US-GLAXOSMITHKLINE-US2021GSK154596

PATIENT
  Age: 49 Year
  Sex: Female
  Weight: 47.6 kg

DRUGS (11)
  1. COMPAZINE [Concomitant]
     Active Substance: PROCHLORPERAZINE MALEATE
     Indication: VOMITING
  2. EMLA [Concomitant]
     Active Substance: LIDOCAINE\PRILOCAINE
     Indication: DRUG THERAPY
     Dosage: 2.5 ?2.5 %
     Route: 061
     Dates: start: 20201109
  3. ZOFRAN [Concomitant]
     Active Substance: ONDANSETRON HYDROCHLORIDE
     Indication: VOMITING
  4. ZARXIO [Concomitant]
     Active Substance: FILGRASTIM-SNDZ
     Indication: PROPHYLAXIS
     Dosage: 300 UG/0.5ML
     Dates: start: 20210706
  5. CARBOPLATIN (NON?GSK COMPARATOR) [Suspect]
     Active Substance: CARBOPLATIN
     Indication: BREAST CANCER
     Dosage: 155 MG, Z?Q1WX12WEEK
     Route: 042
     Dates: start: 20210518, end: 20210518
  6. ENCEQUIDAR(HM30181A) [Suspect]
     Active Substance: ENCEQUIDAR MESYLATE MONOHYDRATE
  7. ZOFRAN [Concomitant]
     Active Substance: ONDANSETRON HYDROCHLORIDE
     Indication: NAUSEA
     Dosage: 8 MG, PRN
     Route: 048
     Dates: start: 20210518
  8. FERROUS SULFATE. [Concomitant]
     Active Substance: FERROUS SULFATE
     Indication: IRON DEFICIENCY ANAEMIA
     Dosage: 325 MG, TID
     Route: 048
     Dates: start: 20210423
  9. DOSTARLIMAB [Suspect]
     Active Substance: DOSTARLIMAB
     Indication: BREAST CANCER
     Dosage: 500 MG, Z?Q3WX12WEEK
     Route: 042
     Dates: start: 20210518, end: 20210518
  10. PACLITAXEL. [Suspect]
     Active Substance: PACLITAXEL
     Indication: BREAST CANCER
     Dosage: 300 MG+12.9 MG, Z?Q3WX12WEEK
     Route: 048
     Dates: start: 20210518
  11. COMPAZINE [Concomitant]
     Active Substance: PROCHLORPERAZINE MALEATE
     Indication: NAUSEA
     Dosage: 10 MG, PRN
     Route: 048
     Dates: start: 20210517

REACTIONS (1)
  - Skin infection [Recovered/Resolved]

NARRATIVE: CASE EVENT DATE: 20210713
